FAERS Safety Report 5753801-1 (Version None)
Quarter: 2008Q2

REPORT INFORMATION
  Report Type: 
  Country: None (occurrence: None)
  Receive Date: 20080530
  Receipt Date: 20080521
  Transmission Date: 20081010
  Serious: Yes (Disabling)
  Sender: FDA-Public Use
  Company Number: FR-ASTRAZENECA-2008CG00569

PATIENT
  Age: 114 Month
  Sex: Male
  Weight: 34.5 kg

DRUGS (2)
  1. SYMBICORT [Suspect]
     Indication: ASTHMA
     Dosage: 160/4.5 UG ONE INHALATION BID
     Route: 055
     Dates: start: 20080322
  2. FLIXOTIDE [Concomitant]
     Indication: ASTHMA
     Route: 055
     Dates: end: 20080321

REACTIONS (2)
  - PAIN IN EXTREMITY [None]
  - TENDONITIS [None]
